FAERS Safety Report 24756811 (Version 1)
Quarter: 2024Q4

REPORT INFORMATION
  Report Type: Spontaneous
  Country: US (occurrence: US)
  Receive Date: 20241220
  Receipt Date: 20241220
  Transmission Date: 20250115
  Serious: No
  Sender: BRISTOL-MYERS SQUIBB COMPANY
  Company Number: US-BRISTOL-MYERS SQUIBB COMPANY-2024-192990

PATIENT
  Age: 68 Year
  Sex: Male

DRUGS (1)
  1. TRIAMCINOLONE ACETONIDE [Suspect]
     Active Substance: TRIAMCINOLONE ACETONIDE
     Indication: Cough
     Dosage: THE INJECTION CONSISTED OF 1:1 MIXTURE OF 1 ML OF TRIAMCINOLONE ACETONIDE 200 MG/5 ML AND LOCAL ANES

REACTIONS (2)
  - Secondary adrenocortical insufficiency [Recovering/Resolving]
  - Off label use [Unknown]
